FAERS Safety Report 9356974 (Version 1)
Quarter: 2013Q2

REPORT INFORMATION
  Report Type: Spontaneous
  Country: US (occurrence: US)
  Receive Date: 20130620
  Receipt Date: 20130620
  Transmission Date: 20140414
  Serious: Yes (Other)
  Sender: FDA-Public Use
  Company Number: US-JNJCP-30000154537

PATIENT
  Age: 46 Year
  Sex: Female

DRUGS (36)
  1. CLEAN + CLEAR PERSA-GEL, MAXIMUM STRENGTH [Suspect]
     Indication: ACNE
     Dosage: PEA SIZED DOLLOP AMOUNT
     Route: 061
     Dates: start: 20130321, end: 20130321
  2. NO DRUG NAME [Concomitant]
  3. NO DRUG NAME [Concomitant]
  4. NO DRUG NAME [Concomitant]
  5. NO DRUG NAME [Concomitant]
  6. NO DRUG NAME [Concomitant]
  7. NO DRUG NAME [Concomitant]
  8. NO DRUG NAME [Concomitant]
  9. NO DRUG NAME [Concomitant]
  10. NO DRUG NAME [Concomitant]
  11. NO DRUG NAME [Concomitant]
  12. NO DRUG NAME [Concomitant]
  13. NO DRUG NAME [Concomitant]
  14. NO DRUG NAME [Concomitant]
  15. NO DRUG NAME [Concomitant]
  16. NO DRUG NAME [Concomitant]
  17. NO DRUG NAME [Concomitant]
  18. NO DRUG NAME [Concomitant]
  19. NO DRUG NAME [Concomitant]
  20. NO DRUG NAME [Concomitant]
  21. NO DRUG NAME [Concomitant]
  22. NO DRUG NAME [Concomitant]
  23. NO DRUG NAME [Concomitant]
  24. NO DRUG NAME [Concomitant]
  25. NO DRUG NAME [Concomitant]
  26. NO DRUG NAME [Concomitant]
  27. NO DRUG NAME [Concomitant]
  28. NO DRUG NAME [Concomitant]
  29. NO DRUG NAME [Concomitant]
  30. NO DRUG NAME [Concomitant]
  31. NO DRUG NAME [Concomitant]
  32. NO DRUG NAME [Concomitant]
  33. NO DRUG NAME [Concomitant]
  34. NO DRUG NAME [Concomitant]
  35. NO DRUG NAME [Concomitant]
  36. NO DRUG NAME [Concomitant]

REACTIONS (4)
  - Hypersensitivity [Recovered/Resolved]
  - Application site rash [Recovered/Resolved]
  - Pruritus [Recovered/Resolved]
  - Wheezing [Recovered/Resolved]
